FAERS Safety Report 4964404-0 (Version None)
Quarter: 2006Q1

REPORT INFORMATION
  Report Type: 
  Country: None (occurrence: None)
  Receive Date: 20060331
  Receipt Date: 20060321
  Transmission Date: 20060701
  Serious: Yes (Disabling)
  Sender: FDA-Public Use
  Company Number: HQWYE468922MAR06

PATIENT
  Age: 61 Year
  Sex: Female

DRUGS (1)
  1. EFFEXOR XR [Suspect]
     Dosage: 300 MG 1X PER 1 DAY

REACTIONS (11)
  - ARTHRALGIA [None]
  - COLITIS [None]
  - FIBROMYALGIA [None]
  - HAEMOGLOBIN DECREASED [None]
  - HEPATIC FUNCTION ABNORMAL [None]
  - HYPERSOMNIA [None]
  - HYPOKALAEMIA [None]
  - PITTING OEDEMA [None]
  - SPEECH DISORDER [None]
  - SYNCOPE [None]
  - URINE OUTPUT DECREASED [None]
